FAERS Safety Report 10094151 (Version 1)
Quarter: 2014Q2

REPORT INFORMATION
  Report Type: Report from Study
  Country: US (occurrence: US)
  Receive Date: 20140422
  Receipt Date: 20140422
  Transmission Date: 20141212
  Serious: Yes (Hospitalization)
  Sender: FDA-Public Use
  Company Number: US-BRISTOL-MYERS SQUIBB COMPANY-20617262

PATIENT
  Age: 46 Year
  Sex: Female
  Weight: 98 kg

DRUGS (1)
  1. ABATACEPT SUBQ INJECTION 125MG/ML [Suspect]
     Indication: RHEUMATOID ARTHRITIS
     Dosage: LAST INJECTION ON 29-MAR-2014

REACTIONS (9)
  - Chest pain [Unknown]
  - Vertigo [Unknown]
  - Melanocytic naevus [Unknown]
  - Urticaria [Unknown]
  - Lung disorder [Unknown]
  - Burning sensation [Unknown]
  - Feeling cold [Unknown]
  - Malaise [Unknown]
  - Dysphagia [Unknown]
